FAERS Safety Report 8792758 (Version 4)
Quarter: 2013Q2

REPORT INFORMATION
  Report Type: Report from Study
  Country: DE (occurrence: DE)
  Receive Date: 20120918
  Receipt Date: 20130625
  Transmission Date: 20140414
  Serious: Yes (Life-Threatening)
  Sender: FDA-Public Use
  Company Number: DE-ROCHE-1104530

PATIENT
  Age: 73 Year
  Sex: Male
  Weight: 75 kg

DRUGS (2)
  1. VEMURAFENIB [Suspect]
     Indication: METASTATIC MALIGNANT MELANOMA
     Dosage: LAST DOSE PRIOR TO SAE 3 NOV 2011
     Route: 048
     Dates: start: 20110906, end: 20111104
  2. VEMURAFENIB [Suspect]
     Route: 048
     Dates: start: 20111207

REACTIONS (1)
  - Hepatotoxicity [Recovered/Resolved]
